FAERS Safety Report 9402405 (Version 2)
Quarter: 2013Q3

REPORT INFORMATION
  Report Type: Spontaneous
  Country: FR (occurrence: FR)
  Receive Date: 20130716
  Receipt Date: 20130808
  Transmission Date: 20140515
  Serious: Yes (Other)
  Sender: FDA-Public Use
  Company Number: FR-ROCHE-1248764

PATIENT
  Age: 86 Year
  Sex: Female

DRUGS (8)
  1. LUCENTIS [Suspect]
     Indication: AGE-RELATED MACULAR DEGENERATION
     Route: 050
  2. LUCENTIS [Suspect]
     Route: 050
     Dates: start: 20130610
  3. PARIET [Concomitant]
  4. OLMETEC [Concomitant]
  5. LIPANTHYL [Concomitant]
  6. LYRICA [Concomitant]
  7. TRICLOCARBAN [Concomitant]
  8. SEROPLEX [Concomitant]

REACTIONS (7)
  - Retinal vein occlusion [Unknown]
  - Retinal artery embolism [Unknown]
  - Age-related macular degeneration [Unknown]
  - Disease progression [Unknown]
  - Neovascularisation [Unknown]
  - Eye discharge [Unknown]
  - Visual acuity reduced [Unknown]
